FAERS Safety Report 20057505 (Version 1)
Quarter: 2021Q4

REPORT INFORMATION
  Report Type: Report from Study
  Country: DE (occurrence: DE)
  Receive Date: 20211111
  Receipt Date: 20211111
  Transmission Date: 20220303
  Serious: Yes (Hospitalization)
  Sender: FDA-Public Use
  Company Number: DE-ABBVIE-21K-062-4151804-00

PATIENT
  Sex: Female
  Weight: 80 kg

DRUGS (6)
  1. RINVOQ [Suspect]
     Active Substance: UPADACITINIB
     Indication: Ankylosing spondylitis
     Route: 048
     Dates: start: 20210922
  2. EDOXABAN TOSYLATE [Concomitant]
     Active Substance: EDOXABAN TOSYLATE
     Indication: Anticoagulant therapy
     Route: 048
     Dates: start: 202108
  3. EDOXABAN TOSYLATE [Concomitant]
     Active Substance: EDOXABAN TOSYLATE
     Indication: Atrial fibrillation
  4. EUTHYROX [Concomitant]
     Active Substance: LEVOTHYROXINE SODIUM
     Indication: Autoimmune thyroiditis
     Route: 048
     Dates: start: 2005
  5. PREDNISOLONE [Concomitant]
     Active Substance: PREDNISOLONE
     Indication: Skin disorder
     Route: 048
     Dates: start: 202105, end: 2021
  6. LOSARTAN [Concomitant]
     Active Substance: LOSARTAN
     Indication: Hypertension
     Route: 048
     Dates: start: 2008

REACTIONS (6)
  - Fall [Recovering/Resolving]
  - Craniocerebral injury [Recovering/Resolving]
  - Contusion [Recovering/Resolving]
  - Dizziness [Recovering/Resolving]
  - Gait disturbance [Unknown]
  - Headache [Recovering/Resolving]

NARRATIVE: CASE EVENT DATE: 20210101
